FAERS Safety Report 10729265 (Version 1)
Quarter: 2015Q1

REPORT INFORMATION
  Report Type: Spontaneous
  Country: US (occurrence: None)
  Receive Date: 20150120
  Receipt Date: 20150120
  Transmission Date: 20150721
  Serious: Yes (Other)
  Sender: FDA-Public Use
  Company Number: None

PATIENT
  Age: 47 Year

DRUGS (1)
  1. NEUPRO [Suspect]
     Active Substance: ROTIGOTINE
     Indication: RESTLESS LEGS SYNDROME
     Dosage: 1 PATCH EVERY 24 HOURS- APPLIED TO A SURFACE, USUALLY THE SKIN
     Route: 061
     Dates: start: 20140101, end: 20150116

REACTIONS (1)
  - Application site burn [None]

NARRATIVE: CASE EVENT DATE: 20140620
